FAERS Safety Report 25447530 (Version 1)
Quarter: 2025Q2

REPORT INFORMATION
  Report Type: Spontaneous
  Country: FR (occurrence: FR)
  Receive Date: 20250617
  Receipt Date: 20250617
  Transmission Date: 20250717
  Serious: Yes (Hospitalization)
  Sender: MYLAN
  Company Number: None

PATIENT
  Age: 60 Year
  Sex: Female
  Weight: 85 kg

DRUGS (44)
  1. METHOTREXATE [Suspect]
     Active Substance: METHOTREXATE
     Indication: Central nervous system lymphoma
     Dates: start: 20250514, end: 20250514
  2. METHOTREXATE [Suspect]
     Active Substance: METHOTREXATE
     Route: 042
     Dates: start: 20250514, end: 20250514
  3. METHOTREXATE [Suspect]
     Active Substance: METHOTREXATE
     Route: 042
     Dates: start: 20250514, end: 20250514
  4. METHOTREXATE [Suspect]
     Active Substance: METHOTREXATE
     Dates: start: 20250514, end: 20250514
  5. IVERMECTIN [Suspect]
     Active Substance: IVERMECTIN
     Indication: Product used for unknown indication
     Dates: start: 20250514, end: 20250514
  6. IVERMECTIN [Suspect]
     Active Substance: IVERMECTIN
     Route: 048
     Dates: start: 20250514, end: 20250514
  7. IVERMECTIN [Suspect]
     Active Substance: IVERMECTIN
     Route: 048
     Dates: start: 20250514, end: 20250514
  8. IVERMECTIN [Suspect]
     Active Substance: IVERMECTIN
     Dates: start: 20250514, end: 20250514
  9. PROCARBAZINE HYDROCHLORIDE [Suspect]
     Active Substance: PROCARBAZINE HYDROCHLORIDE
     Indication: Central nervous system lymphoma
     Dates: start: 20250514, end: 20250517
  10. PROCARBAZINE HYDROCHLORIDE [Suspect]
     Active Substance: PROCARBAZINE HYDROCHLORIDE
     Route: 065
     Dates: start: 20250514, end: 20250517
  11. PROCARBAZINE HYDROCHLORIDE [Suspect]
     Active Substance: PROCARBAZINE HYDROCHLORIDE
     Route: 065
     Dates: start: 20250514, end: 20250517
  12. PROCARBAZINE HYDROCHLORIDE [Suspect]
     Active Substance: PROCARBAZINE HYDROCHLORIDE
     Dates: start: 20250514, end: 20250517
  13. VINCRISTINE SULFATE [Suspect]
     Active Substance: VINCRISTINE SULFATE
     Indication: Central nervous system lymphoma
     Dosage: 2 MILLIGRAM, QD (24 HOURS)
     Dates: start: 20250514, end: 20250514
  14. VINCRISTINE SULFATE [Suspect]
     Active Substance: VINCRISTINE SULFATE
     Dosage: 2 MILLIGRAM, QD (24 HOURS)
     Route: 042
     Dates: start: 20250514, end: 20250514
  15. VINCRISTINE SULFATE [Suspect]
     Active Substance: VINCRISTINE SULFATE
     Dosage: 2 MILLIGRAM, QD (24 HOURS)
     Route: 042
     Dates: start: 20250514, end: 20250514
  16. VINCRISTINE SULFATE [Suspect]
     Active Substance: VINCRISTINE SULFATE
     Dosage: 2 MILLIGRAM, QD (24 HOURS)
     Dates: start: 20250514, end: 20250514
  17. LAMOTRIGINE [Suspect]
     Active Substance: LAMOTRIGINE
     Indication: Tonic convulsion
     Dates: start: 20250501, end: 20250517
  18. LAMOTRIGINE [Suspect]
     Active Substance: LAMOTRIGINE
     Route: 048
     Dates: start: 20250501, end: 20250517
  19. LAMOTRIGINE [Suspect]
     Active Substance: LAMOTRIGINE
     Route: 048
     Dates: start: 20250501, end: 20250517
  20. LAMOTRIGINE [Suspect]
     Active Substance: LAMOTRIGINE
     Dates: start: 20250501, end: 20250517
  21. RITUXIMAB [Concomitant]
     Active Substance: RITUXIMAB
     Dates: start: 20250514, end: 20250514
  22. RITUXIMAB [Concomitant]
     Active Substance: RITUXIMAB
     Route: 065
     Dates: start: 20250514, end: 20250514
  23. RITUXIMAB [Concomitant]
     Active Substance: RITUXIMAB
     Route: 065
     Dates: start: 20250514, end: 20250514
  24. RITUXIMAB [Concomitant]
     Active Substance: RITUXIMAB
     Dates: start: 20250514, end: 20250514
  25. ENOXAPARIN SODIUM [Concomitant]
     Active Substance: ENOXAPARIN SODIUM
  26. ENOXAPARIN SODIUM [Concomitant]
     Active Substance: ENOXAPARIN SODIUM
     Route: 065
  27. ENOXAPARIN SODIUM [Concomitant]
     Active Substance: ENOXAPARIN SODIUM
     Route: 065
  28. ENOXAPARIN SODIUM [Concomitant]
     Active Substance: ENOXAPARIN SODIUM
  29. LANSOPRAZOLE [Concomitant]
     Active Substance: LANSOPRAZOLE
     Dates: start: 20250513, end: 20250514
  30. LANSOPRAZOLE [Concomitant]
     Active Substance: LANSOPRAZOLE
     Route: 065
     Dates: start: 20250513, end: 20250514
  31. LANSOPRAZOLE [Concomitant]
     Active Substance: LANSOPRAZOLE
     Route: 065
     Dates: start: 20250513, end: 20250514
  32. LANSOPRAZOLE [Concomitant]
     Active Substance: LANSOPRAZOLE
     Dates: start: 20250513, end: 20250514
  33. BACTRIM [Concomitant]
     Active Substance: SULFAMETHOXAZOLE\TRIMETHOPRIM
     Dates: start: 20250514, end: 20250514
  34. BACTRIM [Concomitant]
     Active Substance: SULFAMETHOXAZOLE\TRIMETHOPRIM
     Route: 065
     Dates: start: 20250514, end: 20250514
  35. BACTRIM [Concomitant]
     Active Substance: SULFAMETHOXAZOLE\TRIMETHOPRIM
     Route: 065
     Dates: start: 20250514, end: 20250514
  36. BACTRIM [Concomitant]
     Active Substance: SULFAMETHOXAZOLE\TRIMETHOPRIM
     Dates: start: 20250514, end: 20250514
  37. VALACYCLOVIR HYDROCHLORIDE [Concomitant]
     Active Substance: VALACYCLOVIR HYDROCHLORIDE
     Dates: start: 20250514, end: 20250517
  38. VALACYCLOVIR HYDROCHLORIDE [Concomitant]
     Active Substance: VALACYCLOVIR HYDROCHLORIDE
     Route: 065
     Dates: start: 20250514, end: 20250517
  39. VALACYCLOVIR HYDROCHLORIDE [Concomitant]
     Active Substance: VALACYCLOVIR HYDROCHLORIDE
     Route: 065
     Dates: start: 20250514, end: 20250517
  40. VALACYCLOVIR HYDROCHLORIDE [Concomitant]
     Active Substance: VALACYCLOVIR HYDROCHLORIDE
     Dates: start: 20250514, end: 20250517
  41. PREDNISONE [Concomitant]
     Active Substance: PREDNISONE
  42. PREDNISONE [Concomitant]
     Active Substance: PREDNISONE
     Route: 065
  43. PREDNISONE [Concomitant]
     Active Substance: PREDNISONE
     Route: 065
  44. PREDNISONE [Concomitant]
     Active Substance: PREDNISONE

REACTIONS (1)
  - Hepatic cytolysis [Recovering/Resolving]

NARRATIVE: CASE EVENT DATE: 20250517
